FAERS Safety Report 8556904-1 (Version None)
Quarter: 2012Q3

REPORT INFORMATION
  Report Type: 
  Country: None (occurrence: None)
  Receive Date: 20120801
  Receipt Date: 20120727
  Transmission Date: 20120928
  Serious: Yes (Hospitalization, Other)
  Sender: FDA-Public Use
  Company Number: US-PFIZER INC-2012105174

PATIENT
  Sex: Female

DRUGS (1)
  1. CHANTIX [Suspect]
     Indication: SMOKING CESSATION THERAPY
     Dosage: UNK
     Dates: start: 20090601, end: 20090801

REACTIONS (9)
  - ANXIETY [None]
  - CHEST PAIN [None]
  - MUSCULOSKELETAL PAIN [None]
  - INSOMNIA [None]
  - NECK PAIN [None]
  - SUICIDE ATTEMPT [None]
  - ANGINA PECTORIS [None]
  - BACK PAIN [None]
  - DEPRESSION [None]
